FAERS Safety Report 9260584 (Version 2)
Quarter: 2013Q3

REPORT INFORMATION
  Report Type: Spontaneous
  Country: HU (occurrence: HU)
  Receive Date: 20130429
  Receipt Date: 20130819
  Transmission Date: 20140515
  Serious: Yes (Hospitalization)
  Sender: FDA-Public Use
  Company Number: HU-UCBSA-083706

PATIENT
  Age: 78 Year
  Sex: Female
  Weight: 80 kg

DRUGS (4)
  1. CIMZIA [Suspect]
     Indication: RHEUMATOID ARTHRITIS
     Route: 058
     Dates: start: 20130204, end: 20130218
  2. VITAMIN D3 [Concomitant]
     Indication: OSTEOPOROSIS
     Route: 048
  3. OMEPRASOL [Concomitant]
     Indication: GASTROOESOPHAGEAL REFLUX DISEASE
     Route: 048
  4. CITROCALCIUM [Concomitant]
     Indication: OSTEOPOROSIS
     Route: 048

REACTIONS (1)
  - Thrombophlebitis superficial [Recovered/Resolved]
